FAERS Safety Report 23358692 (Version 1)
Quarter: 2024Q1

REPORT INFORMATION
  Report Type: Report from Study
  Country: US (occurrence: US)
  Receive Date: 20240102
  Receipt Date: 20240102
  Transmission Date: 20240410
  Serious: Yes (Hospitalization, Other)
  Sender: FDA-Public Use
  Company Number: US-MIRATI-MT2023PM05597

PATIENT
  Sex: Male
  Weight: 76.19 kg

DRUGS (2)
  1. KRAZATI [Suspect]
     Active Substance: ADAGRASIB
     Indication: Lung neoplasm malignant
     Dosage: 400 MG, BID
     Route: 048
  2. KRAZATI [Suspect]
     Active Substance: ADAGRASIB
     Dosage: 600 MG, BID
     Route: 048
     Dates: start: 20230920, end: 2023

REACTIONS (10)
  - Hospitalisation [Unknown]
  - Tunnel vision [Unknown]
  - Gait disturbance [Unknown]
  - Visual impairment [Unknown]
  - Anxiety [Unknown]
  - Neoplasm progression [Unknown]
  - Photophobia [Unknown]
  - Visual impairment [Unknown]
  - Decreased appetite [Unknown]
  - Asthenia [Unknown]
